FAERS Safety Report 23581885 (Version 1)
Quarter: 2024Q1

REPORT INFORMATION
  Report Type: Spontaneous
  Country: US (occurrence: US)
  Receive Date: 20240229
  Receipt Date: 20240229
  Transmission Date: 20240410
  Serious: Yes (Hospitalization)
  Sender: FDA-Public Use
  Company Number: US-DAIICHI SANKYO, INC.-DSU-2024-108845AA

PATIENT
  Sex: Male

DRUGS (1)
  1. VANFLYTA [Suspect]
     Active Substance: QUIZARTINIB DIHYDROCHLORIDE
     Indication: Acute myeloid leukaemia
     Dosage: 35.4 MG, QD (35.4MG DAILY ON DAYS 6-19 OF EACH CONSOLIDATION CYCLE)
     Route: 048
     Dates: start: 20240201

REACTIONS (6)
  - Pneumonia [Unknown]
  - Dizziness [Unknown]
  - Gait disturbance [Unknown]
  - Platelet count decreased [Unknown]
  - Haemoglobin decreased [Unknown]
  - Glycosylated haemoglobin decreased [Unknown]
